FAERS Safety Report 8165939-2 (Version None)
Quarter: 2012Q1

REPORT INFORMATION
  Report Type: 
  Country: None (occurrence: None)
  Receive Date: 20120227
  Receipt Date: 20111205
  Transmission Date: 20120608
  Serious: No
  Sender: FDA-Public Use
  Company Number: US-MYLANLABS-2011S1024383

PATIENT
  Age: 52 Year
  Sex: Female
  Weight: 99.79 kg

DRUGS (11)
  1. METFORMIN HCL [Concomitant]
  2. CYMBALTA [Concomitant]
  3. CLINDAMYCIN [Concomitant]
     Route: 061
  4. AMNESTEEM [Suspect]
     Indication: ACNE
     Route: 048
     Dates: start: 20110726, end: 20111121
  5. ASPIRIN [Concomitant]
  6. AMNESTEEM [Suspect]
     Route: 048
     Dates: start: 20110726, end: 20111121
  7. GABAPENTIN [Concomitant]
  8. BUPROPION HCL [Concomitant]
  9. HUMALOG [Concomitant]
  10. SYNTHROID [Concomitant]
  11. WELLBUTRIN [Concomitant]

REACTIONS (4)
  - PSORIASIS [None]
  - IMPAIRED HEALING [None]
  - ARTHRALGIA [None]
  - MUSCULOSKELETAL DISCOMFORT [None]
